FAERS Safety Report 7041642-7 (Version None)
Quarter: 2010Q4

REPORT INFORMATION
  Report Type: 
  Country: None (occurrence: None)
  Receive Date: 20101013
  Receipt Date: 20100201
  Transmission Date: 20110411
  Serious: No
  Sender: FDA-Public Use
  Company Number: US-ASTRAZENECA-2009SE32866

PATIENT
  Age: 755 Month
  Sex: Female
  Weight: 65.8 kg

DRUGS (8)
  1. SYMBICORT [Suspect]
     Indication: ASTHMA
     Dosage: 320 UG TWICE A DAY
     Route: 055
     Dates: start: 20090901
  2. XYZAL [Concomitant]
  3. ESTRADIOL [Concomitant]
  4. VYTORIN [Concomitant]
  5. BENECAR [Concomitant]
  6. VITAMIN-MINERAL COMPOUND TAB [Concomitant]
  7. ASTALEN [Concomitant]
  8. OPTIVAIR [Concomitant]

REACTIONS (1)
  - LARYNGITIS [None]
